FAERS Safety Report 23661174 (Version 6)
Quarter: 2025Q3

REPORT INFORMATION
  Report Type: Spontaneous
  Country: JP (occurrence: JP)
  Receive Date: 20240322
  Receipt Date: 20250903
  Transmission Date: 20251021
  Serious: Yes (Life-Threatening, Hospitalization, Disabling, Other)
  Sender: AMGEN
  Company Number: JP-Vifor (International) Inc.-VIT-2024-02450

PATIENT
  Age: 77 Year
  Sex: Female
  Weight: 46 kg

DRUGS (25)
  1. TAVNEOS [Suspect]
     Active Substance: AVACOPAN
     Indication: Microscopic polyangiitis
     Dosage: 30 MG B.I.D
     Route: 048
     Dates: start: 20231021, end: 20231206
  2. PREDNISOLONE [Suspect]
     Active Substance: PREDNISOLONE
     Indication: Microscopic polyangiitis
     Dosage: 5 MILLIGRAM, QD
     Route: 065
     Dates: start: 20231020
  3. PREDNISOLONE [Suspect]
     Active Substance: PREDNISOLONE
     Dosage: 20 UNK
     Route: 065
  4. PREDNISOLONE [Suspect]
     Active Substance: PREDNISOLONE
     Dosage: 17.5 MG, QD
     Route: 065
  5. PREDNISOLONE [Suspect]
     Active Substance: PREDNISOLONE
     Dosage: 15 UNK
     Route: 065
  6. PREDNISOLONE [Suspect]
     Active Substance: PREDNISOLONE
     Dosage: 12.5 UNK
     Route: 065
  7. PREDNISOLONE [Suspect]
     Active Substance: PREDNISOLONE
     Dosage: 10 UNK
     Route: 065
  8. RITUXIMAB [Suspect]
     Active Substance: RITUXIMAB
     Indication: Microscopic polyangiitis
     Dosage: 600 MILLIGRAM, QWK
     Route: 040
     Dates: start: 20231020, end: 20231116
  9. SPIRONOLACTONE [Suspect]
     Active Substance: SPIRONOLACTONE
     Indication: Hypertension
     Dosage: 25 MILLIGRAM, QD
     Route: 048
     Dates: start: 20231026, end: 2023
  10. SPIRONOLACTONE [Suspect]
     Active Substance: SPIRONOLACTONE
     Dosage: 25,MG,QD
     Route: 048
  11. ALENDRONATE [Suspect]
     Active Substance: ALENDRONATE SODIUM
     Indication: Osteoporosis
     Dosage: 35 MILLIGRAM, QWK
     Route: 048
     Dates: start: 20231025, end: 20231206
  12. ALENDRONATE [Suspect]
     Active Substance: ALENDRONATE SODIUM
     Dosage: 35,MG,QW
     Route: 048
     Dates: start: 2023
  13. PITAVASTATIN CALCIUM [Suspect]
     Active Substance: PITAVASTATIN CALCIUM
     Indication: Dyslipidaemia
     Dosage: PER ORAL MEDICINE
     Route: 048
     Dates: end: 2023
  14. PITAVASTATIN CALCIUM [Suspect]
     Active Substance: PITAVASTATIN CALCIUM
     Dosage: PER ORAL MEDICINE
     Route: 048
  15. ESOMEPRAZOLE [Suspect]
     Active Substance: ESOMEPRAZOLE
     Indication: Gastrooesophageal reflux disease
     Dosage: 20 MILLIGRAM, QD
     Route: 048
  16. ESOMEPRAZOLE [Suspect]
     Active Substance: ESOMEPRAZOLE
     Route: 048
  17. VONOPRAZAN FUMARATE [Suspect]
     Active Substance: VONOPRAZAN FUMARATE
     Indication: Duodenal ulcer haemorrhage
     Dosage: PERORAL MEDICINE
     Route: 048
     Dates: start: 2023
  18. LEVOTHYROXINE SODIUM [Concomitant]
     Active Substance: LEVOTHYROXINE SODIUM
     Indication: Autoimmune thyroiditis
     Dosage: 25 MILLIGRAM, QD
     Route: 048
  19. URSO [Concomitant]
     Active Substance: URSODIOL
     Indication: Primary biliary cholangitis
     Route: 048
  20. NATEGLINIDE [Concomitant]
     Active Substance: NATEGLINIDE
     Indication: Steroid diabetes
     Dosage: 90 MILLIGRAM, Q12H
     Route: 048
     Dates: start: 20231025, end: 20231206
  21. CALONAL [Concomitant]
     Active Substance: ACETAMINOPHEN
     Route: 048
     Dates: start: 20231020, end: 20231116
  22. AZILSARTAN KAMEDOXOMIL [Concomitant]
     Active Substance: AZILSARTAN KAMEDOXOMIL
     Indication: Hypertension
     Dosage: PER ORAL MEDICINE
     Route: 048
     Dates: start: 20231024, end: 20231208
  23. POLARAMINE [Concomitant]
     Active Substance: DEXCHLORPHENIRAMINE MALEATE
     Route: 040
     Dates: start: 20231020, end: 20231116
  24. OMEPRAZOLE [Concomitant]
     Active Substance: OMEPRAZOLE
  25. PENTAMIDINE [Concomitant]
     Active Substance: PENTAMIDINE
     Indication: Antifungal prophylaxis

REACTIONS (8)
  - Vanishing bile duct syndrome [Not Recovered/Not Resolved]
  - Pneumocystis jirovecii pneumonia [Recovering/Resolving]
  - Duodenal ulcer haemorrhage [Recovered/Resolved]
  - Tubulointerstitial nephritis [Recovered/Resolved]
  - Rhabdomyolysis [Recovered/Resolved]
  - Deep vein thrombosis [Unknown]
  - Drug eruption [Unknown]
  - Pseudoaldosteronism [Unknown]

NARRATIVE: CASE EVENT DATE: 20231206
